FAERS Safety Report 20865023 (Version 1)
Quarter: 2022Q2

REPORT INFORMATION
  Report Type: Spontaneous
  Country: US (occurrence: US)
  Receive Date: 20220524
  Receipt Date: 20220524
  Transmission Date: 20220720
  Serious: No
  Sender: FDA-Public Use
  Company Number: US-TEVA-2022-US-2033240

PATIENT
  Age: 64 Year
  Sex: Male
  Weight: 75 kg

DRUGS (3)
  1. AIRDUO RESPICLICK [Suspect]
     Active Substance: FLUTICASONE PROPIONATE\SALMETEROL XINAFOATE
     Indication: Asthma
     Dosage: 113-14 MCG/DOSE
     Route: 065
     Dates: start: 20220425
  2. AIRDUO RESPICLICK [Suspect]
     Active Substance: FLUTICASONE PROPIONATE\SALMETEROL XINAFOATE
  3. TEGRETOL [Concomitant]
     Active Substance: CARBAMAZEPINE

REACTIONS (1)
  - Headache [Not Recovered/Not Resolved]

NARRATIVE: CASE EVENT DATE: 20220401
